FAERS Safety Report 23618741 (Version 2)
Quarter: 2024Q1

REPORT INFORMATION
  Report Type: Report from Study
  Country: US (occurrence: US)
  Receive Date: 20240311
  Receipt Date: 20240313
  Transmission Date: 20240410
  Serious: Yes (Other)
  Sender: FDA-Public Use
  Company Number: US-ABBVIE-5671634

PATIENT
  Sex: Female

DRUGS (1)
  1. SKYRIZI [Suspect]
     Active Substance: RISANKIZUMAB-RZAA
     Indication: Product used for unknown indication
     Dosage: UNKNOWN
     Route: 058
     Dates: start: 20230919

REACTIONS (6)
  - Disability [Unknown]
  - Stress [Unknown]
  - Pain [Unknown]
  - Psoriasis [Unknown]
  - Fatigue [Unknown]
  - Anxiety [Unknown]
